FAERS Safety Report 18080594 (Version 2)
Quarter: 2020Q3

REPORT INFORMATION
  Report Type: Spontaneous
  Country: IN (occurrence: IN)
  Receive Date: 20200728
  Receipt Date: 20200828
  Transmission Date: 20201103
  Serious: Yes (Other)
  Sender: FDA-Public Use
  Company Number: NVSC2020IN208650

PATIENT

DRUGS (12)
  1. MYCOPHENOLATE MOFETIL. [Suspect]
     Active Substance: MYCOPHENOLATE MOFETIL
     Indication: RENAL TRANSPLANT
     Dosage: 1000 MG, QD
     Route: 065
  2. VALGAN [Concomitant]
     Active Substance: VALGANCICLOVIR HYDROCHLORIDE
     Indication: PROPHYLAXIS
     Dosage: 450 MG, QD
     Route: 065
  3. TACROLIMUS. [Suspect]
     Active Substance: TACROLIMUS
     Indication: IMMUNOSUPPRESSANT DRUG THERAPY
  4. PREDNISOLONE. [Suspect]
     Active Substance: PREDNISOLONE
     Indication: RENAL TRANSPLANT
     Dosage: 10 MG ON DAY?14
     Route: 065
  5. PREDNISOLONE. [Suspect]
     Active Substance: PREDNISOLONE
     Indication: IMMUNOSUPPRESSANT DRUG THERAPY
  6. BACTRIM [Concomitant]
     Active Substance: SULFAMETHOXAZOLE\TRIMETHOPRIM
     Indication: PROPHYLAXIS
     Dosage: UNK
     Route: 065
  7. RITUXIMAB. [Suspect]
     Active Substance: RITUXIMAB
     Indication: IMMUNOSUPPRESSANT DRUG THERAPY
  8. RITUXIMAB. [Suspect]
     Active Substance: RITUXIMAB
     Indication: RENAL TRANSPLANT
     Dosage: 200 MG ON DAY 21
     Route: 042
  9. METHYLPREDNISOLONE. [Suspect]
     Active Substance: METHYLPREDNISOLONE
     Indication: IMMUNOSUPPRESSANT DRUG THERAPY
     Dosage: 250 MG ON POD 1 AND 2,
     Route: 065
  10. MYCOPHENOLATE MOFETIL. [Suspect]
     Active Substance: MYCOPHENOLATE MOFETIL
     Indication: IMMUNOSUPPRESSANT DRUG THERAPY
  11. TACROLIMUS. [Suspect]
     Active Substance: TACROLIMUS
     Indication: RENAL TRANSPLANT
     Dosage: 0.06 MG/KG BODY WT.
     Route: 065
  12. METHYLPREDNISOLONE. [Suspect]
     Active Substance: METHYLPREDNISOLONE
     Indication: RENAL TRANSPLANT
     Dosage: 500 MG IN ON DAY 0
     Route: 065

REACTIONS (2)
  - Product use in unapproved indication [Unknown]
  - Transplant rejection [Unknown]
